FAERS Safety Report 18441682 (Version 3)
Quarter: 2020Q4

REPORT INFORMATION
  Report Type: Report from Study
  Country: DE (occurrence: DE)
  Receive Date: 20201029
  Receipt Date: 20201117
  Transmission Date: 20210114
  Serious: Yes (Death, Hospitalization, Other)
  Sender: FDA-Public Use
  Company Number: NVSC2020DE284968

PATIENT
  Age: 78 Year
  Sex: Male

DRUGS (15)
  1. EXJADE [Suspect]
     Active Substance: DEFERASIROX
     Dosage: 360 MG (10 MG/KG BODYWEIGHT/DAY=2 TABLETS, 360 MG)
     Route: 048
     Dates: start: 20190124, end: 20190611
  2. EXJADE [Suspect]
     Active Substance: DEFERASIROX
     Dosage: 500 MG (7 MG/KG BODYWEIGHT/DAY= 2 TABLETS ? 500 MG, USING TABLETS FOR ORAL SUSPENSION/DISPERSIBLE TA
     Route: 048
     Dates: start: 20190114, end: 20190123
  3. EXJADE [Suspect]
     Active Substance: DEFERASIROX
     Dosage: 360 MG (10 MG/KG BODYWEIGHT/DAY=2 TABLETS, 360 MG)
     Route: 048
     Dates: start: 20190717, end: 20191023
  4. CIPROFLOXACINE [Concomitant]
     Active Substance: CIPROFLOXACIN
     Indication: C-REACTIVE PROTEIN INCREASED
     Dosage: 500 MG, QD (250 MG 1-0-1)
     Route: 048
     Dates: start: 20190624, end: 20190703
  5. TRANEXAMIC ACID. [Concomitant]
     Active Substance: TRANEXAMIC ACID
     Indication: GINGIVAL BLEEDING
     Dosage: 500 MG, QD (1X/D UP TO MAX. 3X/D, END DATE REPORTED AS 29 JUL 2020)
     Route: 048
     Dates: start: 20191023
  6. IBUPROFEN. [Concomitant]
     Active Substance: IBUPROFEN
     Indication: FACET JOINT BLOCK
     Dosage: UNK
     Route: 048
     Dates: start: 20200315, end: 20200331
  7. EXJADE [Suspect]
     Active Substance: DEFERASIROX
     Dosage: 0 MG/KG BODYWEIGHT/DAY=0 TABLETS, 360 MG
     Route: 048
     Dates: start: 20200203, end: 20200210
  8. EXJADE [Suspect]
     Active Substance: DEFERASIROX
     Dosage: 360 MG (15 MG/KG BODYWEIGHT/DAY=2 TABLETS, 360 MG)
     Route: 048
     Dates: start: 20190612, end: 20190624
  9. EXJADE [Suspect]
     Active Substance: DEFERASIROX
     Indication: MYELODYSPLASTIC SYNDROME
     Dosage: 500 MG (14 MG/KG BODYWEIGHT/DAY= 2 TABLETS ? 500 MG, USING TABLETS FOR ORAL SUSPENSION/DISPERSIBLE T
     Route: 048
     Dates: start: 20181017, end: 20190113
  10. EXJADE [Suspect]
     Active Substance: DEFERASIROX
     Dosage: 360 MG (15 MG/KG BODYWEIGHT/DAY=3 TABLETS, 360 MG)
     Route: 048
     Dates: start: 20191024, end: 20200202
  11. PREDNISOLONE. [Concomitant]
     Active Substance: PREDNISOLONE
     Indication: PRODUCT USED FOR UNKNOWN INDICATION
     Dosage: 20 MG, QD (1 D PRIOR PLATELET CONCENTRATE AND 2 DD AFTERWARDS, END DATE REPORTED AS 22 JUL 2020)
     Route: 048
     Dates: start: 20191204
  12. EXJADE [Suspect]
     Active Substance: DEFERASIROX
     Indication: IRON OVERLOAD
     Dosage: 360 MG (10 MG/KG BODYWEIGHT/DAY=2 TABLETS, 360 MG)
     Route: 048
     Dates: start: 20180606, end: 20181016
  13. EXJADE [Suspect]
     Active Substance: DEFERASIROX
     Dosage: 360 MG (5 MG/KG BODYWEIGHT/DAY=1 TABLETS, 360 MG)
     Route: 048
     Dates: start: 20200211, end: 20200727
  14. EXJADE [Suspect]
     Active Substance: DEFERASIROX
     Dosage: 0 MG/KG BODYWEIGHT/DAY=0 TABLETS, 360 MG
     Route: 048
     Dates: start: 20190625, end: 20190716
  15. METRONIDAZOLE. [Concomitant]
     Active Substance: METRONIDAZOLE
     Indication: DIARRHOEA
     Dosage: 400 MG, QD
     Route: 048
     Dates: start: 20200203, end: 20200210

REACTIONS (6)
  - Therapeutic product effect decreased [Unknown]
  - Appendicitis [Fatal]
  - Weight abnormal [Unknown]
  - Adverse event [Unknown]
  - Multiple organ dysfunction syndrome [Fatal]
  - Sepsis [Fatal]

NARRATIVE: CASE EVENT DATE: 20181017
